FAERS Safety Report 7897218-2 (Version None)
Quarter: 2011Q4

REPORT INFORMATION
  Report Type: 
  Country: None (occurrence: None)
  Receive Date: 20111107
  Receipt Date: 20111103
  Transmission Date: 20120403
  Serious: Yes (Other)
  Sender: FDA-Public Use
  Company Number: US-BAYER-2011-090657

PATIENT
  Age: 70 Year
  Sex: Female

DRUGS (2)
  1. NEXAVAR [Suspect]
     Indication: HEPATIC NEOPLASM MALIGNANT
     Dosage: 200 MG, BID
     Route: 048
     Dates: start: 20110923
  2. OXYCODONE [Concomitant]
     Indication: PAIN
     Dosage: UNK UNK, PRN

REACTIONS (9)
  - BURNING SENSATION [None]
  - UTERINE HAEMORRHAGE [None]
  - EYELID MARGIN CRUSTING [None]
  - BLADDER DISORDER [None]
  - MUSCULOSKELETAL CHEST PAIN [None]
  - ASCITES [None]
  - OCULAR HYPERAEMIA [None]
  - DEPRESSION [None]
  - MUSCULAR WEAKNESS [None]
